FAERS Safety Report 15275984 (Version 1)
Quarter: 2018Q3

REPORT INFORMATION
  Report Type: Spontaneous
  Country: US (occurrence: US)
  Receive Date: 20180728
  Receipt Date: 20180728
  Transmission Date: 20181010
  Serious: Yes (Disabling, Other)
  Sender: FDA-Public Use
  Company Number: None

PATIENT
  Age: 74 Year
  Sex: Male
  Weight: 105.75 kg

DRUGS (14)
  1. ISOSORBIDE MONONITRATE. [Concomitant]
     Active Substance: ISOSORBIDE MONONITRATE
  2. ASPIRIN. [Concomitant]
     Active Substance: ASPIRIN
  3. FLUTICASONE?SALMETEROL [Concomitant]
  4. LATANOPROST. [Concomitant]
     Active Substance: LATANOPROST
  5. VENTOLIN HFA [Concomitant]
     Active Substance: ALBUTEROL SULFATE
  6. ALLOPURINOL. [Concomitant]
     Active Substance: ALLOPURINOL
  7. ATORVASTATIN [Concomitant]
     Active Substance: ATORVASTATIN
  8. FUROSEMIDE. [Concomitant]
     Active Substance: FUROSEMIDE
  9. METOPROLOL SUCCINCTNESS [Concomitant]
  10. LANSOPRAZOLE. [Concomitant]
     Active Substance: LANSOPRAZOLE
  11. MULTAQ [Concomitant]
     Active Substance: DRONEDARONE
  12. DORZOLAMIDE [Concomitant]
     Active Substance: DORZOLAMIDE
  13. RIVAROXABAN [Concomitant]
     Active Substance: RIVAROXABAN
  14. VALSARTAN 160MG TABLETS [Suspect]
     Active Substance: VALSARTAN
     Indication: BLOOD PRESSURE MEASUREMENT
     Dosage: ?          QUANTITY:1 TABLET(S);?
     Route: 048
     Dates: start: 20100101, end: 20180612

REACTIONS (4)
  - Pulmonary congestion [None]
  - Amnesia [None]
  - Cough [None]
  - Chronic kidney disease [None]

NARRATIVE: CASE EVENT DATE: 20110101
